FAERS Safety Report 25306509 (Version 2)
Quarter: 2025Q3

REPORT INFORMATION
  Report Type: Spontaneous
  Country: EU (occurrence: EU)
  Receive Date: 20250513
  Receipt Date: 20250716
  Transmission Date: 20251020
  Serious: Yes (Other)
  Sender: AUROBINDO
  Company Number: EU-CHEPLA-2025004389

PATIENT
  Age: 63 Year
  Sex: Female

DRUGS (25)
  1. CLOZAPINE [Suspect]
     Active Substance: CLOZAPINE
     Indication: Schizophrenia
     Dosage: 300 MILLIGRAM, ONCE A DAY
     Route: 065
     Dates: start: 200911
  2. CLOZAPINE [Suspect]
     Active Substance: CLOZAPINE
     Indication: Bursitis
  3. CLOZAPINE [Suspect]
     Active Substance: CLOZAPINE
     Indication: Leukopenia
  4. OLANZAPINE [Suspect]
     Active Substance: OLANZAPINE
     Indication: Schizophrenia
     Dosage: 30 MILLIGRAM, ONCE A DAY
     Route: 065
     Dates: start: 2009
  5. OLANZAPINE [Suspect]
     Active Substance: OLANZAPINE
     Dosage: 15 MILLIGRAM, ONCE A DAY
     Route: 065
     Dates: start: 201205
  6. OLANZAPINE [Suspect]
     Active Substance: OLANZAPINE
     Dosage: 30 MILLIGRAM, ONCE A DAY
     Route: 065
     Dates: start: 201206
  7. OLANZAPINE [Suspect]
     Active Substance: OLANZAPINE
     Route: 030
     Dates: start: 201206
  8. OLANZAPINE [Suspect]
     Active Substance: OLANZAPINE
     Dosage: 20 MILLIGRAM, ONCE A DAY
     Route: 065
     Dates: start: 202306
  9. OLANZAPINE [Suspect]
     Active Substance: OLANZAPINE
     Dosage: 10 MILLIGRAM, ONCE A DAY
     Route: 065
     Dates: start: 202306
  10. OLANZAPINE [Suspect]
     Active Substance: OLANZAPINE
     Route: 065
     Dates: start: 201210
  11. ZUCLOPENTHIXOL [Suspect]
     Active Substance: ZUCLOPENTHIXOL
     Indication: Schizophrenia
     Dosage: 30 MILLIGRAM, ONCE A DAY
     Route: 065
  12. ZUCLOPENTHIXOL [Suspect]
     Active Substance: ZUCLOPENTHIXOL
     Route: 030
     Dates: start: 200911
  13. ZUCLOPENTHIXOL [Suspect]
     Active Substance: ZUCLOPENTHIXOL
     Dosage: 20 MILLIGRAM, ONCE A DAY
     Route: 065
     Dates: start: 202302
  14. ZUCLOPENTHIXOL [Suspect]
     Active Substance: ZUCLOPENTHIXOL
     Dosage: 20 MILLIGRAM, ONCE A DAY
     Route: 065
     Dates: start: 202306
  15. PALIPERIDONE PALMITATE [Suspect]
     Active Substance: PALIPERIDONE PALMITATE
     Indication: Schizophrenia
     Route: 030
     Dates: start: 201205, end: 201206
  16. PALIPERIDONE PALMITATE [Suspect]
     Active Substance: PALIPERIDONE PALMITATE
     Dosage: 6 MILLIGRAM, ONCE A DAY
     Route: 065
     Dates: start: 202306
  17. PALIPERIDONE PALMITATE [Suspect]
     Active Substance: PALIPERIDONE PALMITATE
     Route: 030
     Dates: start: 20230619
  18. PALIPERIDONE PALMITATE [Suspect]
     Active Substance: PALIPERIDONE PALMITATE
     Route: 030
     Dates: start: 20230626
  19. LURASIDONE [Concomitant]
     Active Substance: LURASIDONE
     Indication: Schizophrenia
     Dosage: 18.5 MILLIGRAM, ONCE A DAY
     Route: 065
     Dates: start: 202302
  20. LURASIDONE [Concomitant]
     Active Substance: LURASIDONE
     Dosage: 111 MILLIGRAM, ONCE A DAY
     Route: 065
     Dates: start: 202306
  21. ARIPIPRAZOLE [Concomitant]
     Active Substance: ARIPIPRAZOLE
     Indication: Schizophrenia
     Dosage: 10 MILLIGRAM, ONCE A DAY
     Route: 065
     Dates: start: 202306
  22. ZUCLOPENTHIXOL [Concomitant]
     Active Substance: ZUCLOPENTHIXOL
     Indication: Product used for unknown indication
     Route: 030
     Dates: start: 200911
  23. IRON [Concomitant]
     Active Substance: IRON
     Indication: Product used for unknown indication
     Route: 042
  24. VITAMIN B12 [Concomitant]
     Active Substance: CYANOCOBALAMIN
     Indication: Product used for unknown indication
     Route: 030
  25. FILGRASTIM [Concomitant]
     Active Substance: FILGRASTIM
     Indication: Product used for unknown indication
     Route: 030

REACTIONS (2)
  - Bicytopenia [Unknown]
  - Treatment noncompliance [Unknown]

NARRATIVE: CASE EVENT DATE: 20220701
